FAERS Safety Report 8233552-4 (Version None)
Quarter: 2012Q1

REPORT INFORMATION
  Report Type: 
  Country: None (occurrence: None)
  Receive Date: 20120323
  Receipt Date: 20120323
  Transmission Date: 20120608
  Serious: No
  Sender: FDA-Public Use
  Company Number: None

PATIENT

DRUGS (3)
  1. MORPHINE SUL INJ [Suspect]
     Dosage: INJECTABLE SYRINGE
     Route: 042
  2. HYDROMORPHONE HCL [Suspect]
     Dosage: INJECTABLE SYRINGE
     Route: 042
  3. MIDAZOLAM HCL [Suspect]
     Dosage: INJECTABLE SYRINGE
     Route: 042

REACTIONS (5)
  - MEDICATION ERROR [None]
  - DRUG LABEL CONFUSION [None]
  - DRUG NAME CONFUSION [None]
  - PRODUCT CONTAINER ISSUE [None]
  - CIRCUMSTANCE OR INFORMATION CAPABLE OF LEADING TO MEDICATION ERROR [None]
